FAERS Safety Report 17126929 (Version 1)
Quarter: 2019Q4

REPORT INFORMATION
  Report Type: Report from Study
  Country: None (occurrence: CA)
  Receive Date: 20191209
  Receipt Date: 20191209
  Transmission Date: 20200122
  Serious: Yes (Hospitalization, Other)
  Sender: FDA-Public Use
  Company Number: CA-ABBVIE-19K-028-2829322-00

PATIENT
  Age: 37 Year
  Sex: Female
  Weight: 136 kg

DRUGS (2)
  1. HUMIRA [Suspect]
     Active Substance: ADALIMUMAB
     Indication: PSORIASIS
     Route: 058
     Dates: start: 20190515, end: 20190605
  2. HUMIRA [Suspect]
     Active Substance: ADALIMUMAB
     Route: 058
     Dates: start: 2019

REACTIONS (3)
  - Road traffic accident [Recovered/Resolved]
  - Open reduction of fracture [Recovered/Resolved]
  - Tibia fracture [Unknown]

NARRATIVE: CASE EVENT DATE: 20190612
